FAERS Safety Report 6970475-2 (Version None)
Quarter: 2010Q3

REPORT INFORMATION
  Report Type: 
  Country: None (occurrence: None)
  Receive Date: 20100908
  Receipt Date: 20100903
  Transmission Date: 20110219
  Serious: Yes (Life-Threatening)
  Sender: FDA-Public Use
  Company Number: CA-ROCHE-709726

PATIENT
  Sex: Male
  Weight: 112.3 kg

DRUGS (6)
  1. PEGINTERFERON ALFA-2A [Suspect]
     Dosage: DOSE: 180 UG/ML. FORM: LIQUID. LAST DOSE PRIOR TO SAE: 09 JUN 2010.
     Route: 058
     Dates: start: 20100407
  2. RO 5024048 (POLYMERASE INHIBITOR) [Suspect]
     Dosage: LAST DOSE PRIOR TO SAE: 12 JUN 2010
     Route: 048
     Dates: start: 20100407
  3. RIBAVIRIN [Suspect]
     Dosage: 600 MG IN MORNING AND 400 MG IN EVENING. LAST DOSE PRIOR TO SAE: 12 JUN 2010
     Route: 048
     Dates: start: 20100407
  4. MULTIVITAMIN NOS [Concomitant]
     Dosage: TDD: 1 PILL DRUG: MULTIVITAMINS
     Dates: start: 20080101
  5. AMERGE [Concomitant]
     Dosage: TDD: PRN
     Dates: start: 19900101
  6. OMEPRAZOLE [Concomitant]
     Dates: start: 20070101

REACTIONS (1)
  - PULMONARY EMBOLISM [None]
